FAERS Safety Report 18202381 (Version 1)
Quarter: 2020Q3

REPORT INFORMATION
  Report Type: Spontaneous
  Country: US (occurrence: US)
  Receive Date: 20200827
  Receipt Date: 20200827
  Transmission Date: 20201103
  Serious: No
  Sender: FDA-Public Use
  Company Number: None

PATIENT
  Age: 87 Year
  Sex: Male
  Weight: 78.4 kg

DRUGS (16)
  1. LEUKERAN [Suspect]
     Active Substance: CHLORAMBUCIL
     Indication: CHRONIC LYMPHOCYTIC LEUKAEMIA
     Route: 048
     Dates: start: 20200616, end: 20200827
  2. MULTI VITAMIN DAILY [Concomitant]
  3. MUPIROCIN. [Concomitant]
     Active Substance: MUPIROCIN
  4. VITAMIN D3 [Concomitant]
     Active Substance: CHOLECALCIFEROL
  5. PROCHLORPERAZINE MALEATE. [Concomitant]
     Active Substance: PROCHLORPERAZINE MALEATE
  6. FERROUS SULFATE. [Concomitant]
     Active Substance: FERROUS SULFATE
  7. ASCORBIC ACID. [Concomitant]
     Active Substance: ASCORBIC ACID
  8. ONDANSETRON HCL [Concomitant]
     Active Substance: ONDANSETRON HYDROCHLORIDE
  9. WARFARIN SODIUM. [Concomitant]
     Active Substance: WARFARIN SODIUM
  10. METOPROLOL SUCCINATE ER [Concomitant]
     Active Substance: METOPROLOL SUCCINATE
  11. GABAPENTIN. [Concomitant]
     Active Substance: GABAPENTIN
  12. SALMON OIL ? OMEGA ? 3 [Concomitant]
  13. ACETAMINOPHEN. [Concomitant]
     Active Substance: ACETAMINOPHEN
  14. ALLOPURINOL. [Concomitant]
     Active Substance: ALLOPURINOL
  15. ATENOLOL. [Concomitant]
     Active Substance: ATENOLOL
  16. FINASTERIDE. [Concomitant]
     Active Substance: FINASTERIDE

REACTIONS (1)
  - Hospice care [None]

NARRATIVE: CASE EVENT DATE: 20200827
